FAERS Safety Report 8921322 (Version 3)
Quarter: 2013Q1

REPORT INFORMATION
  Report Type: Spontaneous
  Country: US (occurrence: US)
  Receive Date: 20121122
  Receipt Date: 20130321
  Transmission Date: 20140127
  Serious: No
  Sender: FDA-Public Use
  Company Number: US-009507513-1211USA008465

PATIENT
  Age: 28 Year
  Sex: Female
  Weight: 61.22 kg

DRUGS (7)
  1. IMPLANON [Suspect]
     Indication: CONTRACEPTION
     Dosage: 1 DF, UP TO 3 YEARS,ROUTE-RIGHT ARM IMPLANT
     Dates: start: 20120608
  2. CALCIUM (UNSPECIFIED) [Concomitant]
  3. CYANOCOBALAMIN [Concomitant]
  4. TEA [Concomitant]
  5. VICODIN [Concomitant]
  6. NAPROXEN [Concomitant]
  7. VITAMINS (UNSPECIFIED) [Concomitant]

REACTIONS (2)
  - Pruritus [Unknown]
  - Breast discharge [Unknown]
